FAERS Safety Report 4334449-2 (Version None)
Quarter: 2004Q1

REPORT INFORMATION
  Report Type: 
  Country: None (occurrence: None)
  Receive Date: 20040329
  Receipt Date: 20040210
  Transmission Date: 20041129
  Serious: No
  Sender: FDA-Public Use
  Company Number: 04P-163-0249838-00

PATIENT
  Age: 74 Year
  Sex: Female

DRUGS (17)
  1. HUMIRA [Suspect]
     Indication: RHEUMATOID ARTHRITIS
     Dosage: 40 MG, 1 IN 2 WK, SUBCUTANEOUS
     Route: 058
     Dates: start: 20031101
  2. PREDNISONE [Concomitant]
  3. RALOXIFENE HCL [Concomitant]
  4. MULTI-VITAMINS [Concomitant]
  5. OMEPRAZOLE [Concomitant]
  6. FOLIC ACID [Concomitant]
  7. NAPROXEN [Concomitant]
  8. AMITRIPTYLINE HYDROCHLORIDE [Concomitant]
  9. VICODIN [Concomitant]
  10. DARVOCET [Concomitant]
  11. ACEMETACIN [Concomitant]
  12. VOCODIN [Concomitant]
  13. CYCLOBENZAPRINE HYDROCHLORIDE [Concomitant]
  14. MIACALCIUM [Concomitant]
  15. ALBUTEROL SULFATE [Concomitant]
  16. IPRATROPIUM BROMIDE [Concomitant]
  17. OXYGEN [Concomitant]

REACTIONS (3)
  - ERYTHEMA [None]
  - FEELING ABNORMAL [None]
  - FEELING HOT [None]
